FAERS Safety Report 8883321 (Version 2)
Quarter: 2012Q4

REPORT INFORMATION
  Report Type: 
  Country: DE (occurrence: DE)
  Receive Date: 20121102
  Receipt Date: 20121113
  Transmission Date: 20130627
  Serious: Yes (Hospitalization)
  Sender: FDA-Public Use
  Company Number: GXKR2012DE003382

PATIENT
  Age: 75 Year
  Sex: Male
  Weight: 89 kg

DRUGS (4)
  1. TELTONAL [Suspect]
     Indication: PAIN
     Dosage: 480 mg, QD
     Route: 048
     Dates: start: 2006
  2. ACETYLSALICYLIC ACID [Interacting]
     Dosage: 100 mg, QD
     Route: 048
     Dates: start: 2010, end: 2012
  3. AMLODIPINE [Concomitant]
     Dosage: 5 mg, QD
     Route: 048
     Dates: start: 2002
  4. SIMVASTATIN [Concomitant]
     Dosage: 10 mg, QD
     Route: 048
     Dates: start: 2009

REACTIONS (4)
  - Oesophageal disorder [Recovered/Resolved]
  - Oesophageal ulcer haemorrhage [Recovered/Resolved]
  - Oesophageal haemorrhage [Recovered/Resolved]
  - Drug interaction [Unknown]
